FAERS Safety Report 8902604 (Version 1)
Quarter: 2012Q4

REPORT INFORMATION
  Report Type: 
  Country: DK (occurrence: DK)
  Receive Date: 20121112
  Receipt Date: 20121112
  Transmission Date: 20130627
  Serious: Yes (Other)
  Sender: FDA-Public Use
  Company Number: PHHY2012DK102582

PATIENT
  Age: 63 Year
  Sex: Female

DRUGS (5)
  1. ANCOZAN [Suspect]
     Indication: HYPERTENSION
  2. EFEXOR [Suspect]
     Indication: DEPRESSION
     Dosage: 150 mg
     Dates: start: 20071030, end: 20120105
  3. ELTROXIN [Concomitant]
     Indication: METABOLIC DISORDER
     Dosage: 50 ug, QD
  4. METFORMIN [Concomitant]
     Indication: TYPE 2 DIABETES MELLITUS
     Dosage: 850 mg, BID
     Dates: start: 201108, end: 201110
  5. JANUVIA [Concomitant]
     Indication: TYPE 2 DIABETES MELLITUS
     Dosage: 100 mg, QD
     Dates: start: 201108, end: 201110

REACTIONS (4)
  - Motor dysfunction [Recovered/Resolved]
  - Freezing phenomenon [Recovered/Resolved]
  - Hyperhidrosis [Recovered/Resolved]
  - Restlessness [Recovered/Resolved]
